FAERS Safety Report 4975742-X (Version None)
Quarter: 2006Q2

REPORT INFORMATION
  Report Type: 
  Country: None (occurrence: None)
  Receive Date: 20060418
  Receipt Date: 20050915
  Transmission Date: 20061013
  Serious: Yes (Hospitalization, Disabling)
  Sender: FDA-Public Use
  Company Number: GB-NOVOPROD-247002

PATIENT
  Age: 55 Year
  Sex: Male
  Weight: 98 kg

DRUGS (9)
  1. LEVEMIR [Suspect]
     Indication: DIABETES MELLITUS INSULIN-DEPENDENT
     Dosage: 50 IU, QD
     Route: 058
     Dates: start: 20050426
  2. QUINAPRIL [Concomitant]
     Dosage: 10 MG, QD
     Route: 048
  3. BEZAFIBRATE [Concomitant]
     Dosage: 400 MG, QD
     Route: 048
  4. IRBESARTAN [Concomitant]
     Dosage: 150 MG, QD
     Route: 048
     Dates: start: 20030316
  5. BENDROFLUAZIDE [Concomitant]
     Dosage: 2.5 MG, QD
     Route: 048
  6. ASPIRIN [Concomitant]
     Dosage: 75 MG, QD
     Route: 048
  7. LANSOPRAZOLE [Concomitant]
     Dosage: 15 MG, QD
     Route: 048
  8. ACTRAPID [Concomitant]
     Dosage: UNK, TID
  9. INSULATARD NPH HUMAN [Concomitant]

REACTIONS (2)
  - EXTREMITY NECROSIS [None]
  - WOUND INFECTION STAPHYLOCOCCAL [None]
